FAERS Safety Report 9531461 (Version 1)
Quarter: 2013Q2

REPORT INFORMATION
  Report Type: Spontaneous
  Country: DE (occurrence: None)
  Receive Date: 20130404
  Receipt Date: 20130404
  Transmission Date: 20140414
  Serious: Yes (Other)
  Sender: FDA-Public Use
  Company Number: E2B_00000176

PATIENT
  Age: 49 Year
  Sex: Male

DRUGS (3)
  1. SERTRALINE (SERTALINE) [Suspect]
     Indication: PRODUCT USED FOR UNKNOWN INDICATION
     Dosage: 50 MG, 1 IN 1 D
     Route: 048
     Dates: start: 20111229, end: 20120105
  2. MIRTAZAPINE (MIRTAZAPINE) [Suspect]
     Indication: PRODUCT USED FOR UNKNOWN INDICATION
     Dosage: 15 MG, 1 IN 1 D
     Route: 048
     Dates: start: 20120103, end: 20120104
  3. VENLAFAXINE HYDROCHLORIDE [Suspect]
     Dosage: 75 MG, 1 IN 1 D
     Route: 048
     Dates: start: 20111229, end: 20120104

REACTIONS (1)
  - Haemorrhagic disorder [None]
